FAERS Safety Report 7927569-4 (Version None)
Quarter: 2011Q4

REPORT INFORMATION
  Report Type: 
  Country: None (occurrence: None)
  Receive Date: 20111118
  Receipt Date: 20111104
  Transmission Date: 20120403
  Serious: Yes (Hospitalization)
  Sender: FDA-Public Use
  Company Number: DE-ROCHE-1004606

PATIENT
  Sex: Male
  Weight: 76 kg

DRUGS (6)
  1. PEGASYS [Suspect]
     Indication: HEPATITIS C
     Route: 058
     Dates: start: 20110812
  2. DIAZEPAM [Concomitant]
  3. COPEGUS [Suspect]
     Dates: start: 20111001
  4. COPEGUS [Suspect]
     Indication: HEPATITIS C
     Route: 048
     Dates: start: 20110812, end: 20110927
  5. MIRTAZAPINE [Concomitant]
     Indication: DEPRESSION
  6. SUBUTEX [Concomitant]

REACTIONS (4)
  - THROMBOSIS [None]
  - PYREXIA [None]
  - ANAEMIA [None]
  - THROMBOPHLEBITIS [None]
